FAERS Safety Report 6688901-5 (Version None)
Quarter: 2010Q2

REPORT INFORMATION
  Report Type: 
  Country: None (occurrence: None)
  Receive Date: 20100420
  Receipt Date: 20100412
  Transmission Date: 20101027
  Serious: Yes (Other)
  Sender: FDA-Public Use
  Company Number: JP-GENENTECH-300013

PATIENT
  Sex: Male

DRUGS (3)
  1. GRTPA [Suspect]
     Indication: CEREBROVASCULAR DISORDER
     Dosage: 38.9 ML, UNK
     Route: 042
     Dates: start: 20100310, end: 20100310
  2. FAMOTIDINE [Concomitant]
     Indication: DRUG USE FOR UNKNOWN INDICATION
     Dosage: 20 MG, UNK
     Route: 041
     Dates: start: 20100310
  3. RINGER-ACETAT [Concomitant]
     Indication: DRUG USE FOR UNKNOWN INDICATION
     Dosage: 500 ML, UNK
     Route: 041
     Dates: start: 20100310

REACTIONS (1)
  - AORTIC DISSECTION [None]
